FAERS Safety Report 9852961 (Version 1)
Quarter: 2014Q1

REPORT INFORMATION
  Report Type: Spontaneous
  Country: US (occurrence: None)
  Receive Date: 20140128
  Receipt Date: 20140128
  Transmission Date: 20141002
  Serious: Yes (Hospitalization)
  Sender: FDA-Public Use
  Company Number: None

PATIENT
  Age: 73 Year
  Sex: Male
  Weight: 62.7 kg

DRUGS (2)
  1. VENLAFAXINE [Suspect]
     Indication: DEPRESSION
     Route: 048
     Dates: start: 20131008, end: 20140104
  2. MELOXICAM [Suspect]
     Indication: PAIN
     Route: 048
     Dates: start: 20131219, end: 20140103

REACTIONS (7)
  - Balance disorder [None]
  - Dizziness [None]
  - Asthenia [None]
  - Arthralgia [None]
  - Fall [None]
  - Hyponatraemia [None]
  - Hypovolaemia [None]
